FAERS Safety Report 24910378 (Version 1)
Quarter: 2025Q1

REPORT INFORMATION
  Report Type: Spontaneous
  Country: US (occurrence: None)
  Receive Date: 20250130
  Receipt Date: 20250130
  Transmission Date: 20250409
  Serious: Yes (Disabling)
  Sender: FDA-CTU
  Company Number: None

PATIENT
  Age: 70 Year
  Sex: Male
  Weight: 74.4 kg

DRUGS (8)
  1. MOSUNETUZUMAB [Suspect]
     Active Substance: MOSUNETUZUMAB
     Indication: Marginal zone lymphoma
     Route: 030
     Dates: start: 20241210
  2. sulfamethoxazole-trimethoprim (BACTRIM DS) 800-160 MG per tablet [Concomitant]
  3. dorzolamide-timolol (COSOPT) 2-0.5 % ophthalmic solution [Concomitant]
  4. dexamethasone (DECADRON) 4 MG tablet [Concomitant]
  5. pantoprazole (Protonix) 40 MG tablet [Concomitant]
  6. acyclovir (Zovirax) 400 MG tablet [Concomitant]
  7. atorvastatin (LIPITOR) 20 MG tablet [Concomitant]
  8. finasteride (PROSCAR) 5 MG tablet [Concomitant]

REACTIONS (4)
  - Optic neuropathy [None]
  - Lymphoma [None]
  - Tumour flare [None]
  - Toxicity to various agents [None]

NARRATIVE: CASE EVENT DATE: 20250117
